FAERS Safety Report 4597171-3 (Version None)
Quarter: 2005Q1

REPORT INFORMATION
  Report Type: 
  Country: None (occurrence: None)
  Receive Date: 20050223
  Receipt Date: 20050207
  Transmission Date: 20050727
  Serious: No
  Sender: FDA-Public Use
  Company Number: 601827

PATIENT
  Age: 12 Year
  Sex: Male
  Weight: 34.3 kg

DRUGS (1)
  1. ADVATE [Suspect]
     Indication: FACTOR VIII DEFICIENCY
     Dosage: 1500 IU; BIW, INTRAVENOUS
     Route: 042
     Dates: start: 20040301

REACTIONS (4)
  - CONTUSION [None]
  - DRUG EFFECT DECREASED [None]
  - FACTOR VIII INHIBITION [None]
  - HAEMORRHAGE [None]
